FAERS Safety Report 18417162 (Version 2)
Quarter: 2020Q4

REPORT INFORMATION
  Report Type: Spontaneous
  Country: US (occurrence: US)
  Receive Date: 20201022
  Receipt Date: 20201127
  Transmission Date: 20210114
  Serious: Yes (Death, Other)
  Sender: FDA-Public Use
  Company Number: US-PURDUE-USA-2020-0171384

PATIENT
  Sex: Male

DRUGS (4)
  1. HEROIN [Suspect]
     Active Substance: DIAMORPHINE
     Indication: PRODUCT USED FOR UNKNOWN INDICATION
     Dosage: UNK
     Route: 065
  2. OXYCODONE HYDROCHLORIDE (SIMILAR TO NDA 22-272) [Suspect]
     Active Substance: OXYCODONE HYDROCHLORIDE
     Indication: BACK PAIN
     Dosage: UNK
     Route: 048
  3. DILAUDID [Suspect]
     Active Substance: HYDROMORPHONE HYDROCHLORIDE
     Indication: BACK PAIN
     Dosage: UNK
     Route: 048
  4. OXYCODONE HCL CR TABLETS (SIMILAR TO NDA 22-272) [Suspect]
     Active Substance: OXYCODONE HYDROCHLORIDE
     Indication: BACK PAIN
     Dosage: UNK
     Route: 048

REACTIONS (6)
  - Overdose [Unknown]
  - Death [Fatal]
  - Drug dependence [Unknown]
  - Road traffic accident [Unknown]
  - Injury [Unknown]
  - Suicide attempt [Unknown]
